FAERS Safety Report 14007101 (Version 1)
Quarter: 2017Q3

REPORT INFORMATION
  Report Type: Spontaneous
  Country: US (occurrence: US)
  Receive Date: 20170923
  Receipt Date: 20170923
  Transmission Date: 20171128
  Serious: Yes (Other)
  Sender: FDA-Public Use
  Company Number: None

PATIENT
  Age: 64 Year
  Sex: Male
  Weight: 88.2 kg

DRUGS (3)
  1. TEMS UNIT [Concomitant]
  2. METOPROLOL TARTRATE 25 MG [Suspect]
     Active Substance: METOPROLOL TARTRATE
     Indication: HYPERTENSION
     Dosage: ?          QUANTITY:1 TABLET(S);?
     Route: 048
     Dates: start: 20170909, end: 20170922
  3. VITAMINS [Concomitant]
     Active Substance: VITAMINS

REACTIONS (6)
  - Vertigo [None]
  - Peripheral coldness [None]
  - Hyperhidrosis [None]
  - Chills [None]
  - Night sweats [None]
  - Syncope [None]

NARRATIVE: CASE EVENT DATE: 20170922
